FAERS Safety Report 16917973 (Version 1)
Quarter: 2019Q4

REPORT INFORMATION
  Report Type: Spontaneous
  Country: US (occurrence: US)
  Receive Date: 20190822
  Receipt Date: 20190822
  Transmission Date: 20200122
  Serious: No
  Sender: FDA-Public Use
  Company Number: None

PATIENT
  Sex: Female
  Weight: 97 kg

DRUGS (2)
  1. NO DRUG NAME [Concomitant]
  2. GAMMAGARD LIQUID [Suspect]
     Active Substance: HUMAN IMMUNOGLOBULIN G
     Indication: GASTROINTESTINAL DISORDER
     Route: 042
     Dates: start: 20170607

REACTIONS (3)
  - Pallor [None]
  - Platelet count decreased [None]
  - Dyspnoea [None]
